FAERS Safety Report 15403371 (Version 1)
Quarter: 2018Q3

REPORT INFORMATION
  Report Type: Other
  Country: DE (occurrence: DE)
  Receive Date: 20180919
  Receipt Date: 20180919
  Transmission Date: 20181010
  Serious: Yes (Hospitalization, Other)
  Sender: FDA-Public Use
  Company Number: DE-MACLEODS PHARMACEUTICALS US LTD-MAC2018016569

PATIENT

DRUGS (2)
  1. MEMANTINE. [Suspect]
     Active Substance: MEMANTINE
     Indication: DEMENTIA
     Dosage: INCREASE TO 20 MG, THEN TO 15 MG DUE TO IMPAIRED KIDNEY FUNCTION, HEART FAILURE HIGH CREATININE
     Route: 048
  2. MEMANTINE. [Suspect]
     Active Substance: MEMANTINE
     Indication: COGNITIVE DISORDER

REACTIONS (7)
  - Dementia [Unknown]
  - Cystitis noninfective [Unknown]
  - Confusional state [Unknown]
  - Condition aggravated [Unknown]
  - Coordination abnormal [Unknown]
  - Muscle twitching [Unknown]
  - Somnolence [Unknown]
